FAERS Safety Report 7089450-5 (Version None)
Quarter: 2010Q4

REPORT INFORMATION
  Report Type: 
  Country: None (occurrence: None)
  Receive Date: 20101108
  Receipt Date: 20101104
  Transmission Date: 20110411
  Serious: Yes (Life-Threatening, Other)
  Sender: FDA-Public Use
  Company Number: JP-ABBOTT-10P-087-0621602-00

PATIENT
  Sex: Female

DRUGS (10)
  1. HUMIRA [Suspect]
     Indication: RHEUMATOID ARTHRITIS
     Dosage: 40MG/4WKS
     Route: 058
     Dates: start: 20090724, end: 20100108
  2. METHOTREXATE [Concomitant]
     Indication: RHEUMATOID ARTHRITIS
     Dosage: 8MG/WK
     Dates: start: 20091210
  3. METHOTREXATE [Concomitant]
     Dosage: 6MG/WK
     Dates: start: 20091211
  4. PREDNISOLONE [Concomitant]
     Indication: RHEUMATOID ARTHRITIS
     Route: 048
     Dates: end: 20091015
  5. PREDNISOLONE [Concomitant]
     Route: 048
     Dates: start: 20091016
  6. ISONIAZID [Concomitant]
     Indication: ANTIBIOTIC PROPHYLAXIS
     Dosage: 300 MG DAILY
  7. LOXOPROFEN SODIUM HYDRATE [Concomitant]
     Indication: RHEUMATOID ARTHRITIS
     Dosage: 180 MG DAILY
  8. REBAMIPIDE [Concomitant]
     Indication: GASTRITIS PROPHYLAXIS
     Dosage: 300 MG DAILY
  9. FOLIC ACID [Concomitant]
     Indication: PROPHYLAXIS
     Dosage: 5MG/W
  10. FOLIC ACID [Concomitant]
     Indication: ADVERSE DRUG REACTION

REACTIONS (2)
  - CERVICAL DYSPLASIA [None]
  - PNEUMONIA [None]
